FAERS Safety Report 19478753 (Version 3)
Quarter: 2022Q1

REPORT INFORMATION
  Report Type: Spontaneous
  Country: IN (occurrence: IN)
  Receive Date: 20210630
  Receipt Date: 20220120
  Transmission Date: 20220423
  Serious: Yes (Death, Hospitalization)
  Sender: FDA-Public Use
  Company Number: IN-PFIZER INC-2018377120

PATIENT
  Age: 45 Year
  Sex: Male
  Weight: 65 kg

DRUGS (7)
  1. SUTENT [Suspect]
     Active Substance: SUNITINIB MALATE
     Indication: Metastatic renal cell carcinoma
     Dosage: 50 MG, CYCLIC (FOR 4 WEEKS WITH THE GAP OF 1 WEEK)
     Route: 048
     Dates: start: 20131217
  2. SUTENT [Suspect]
     Active Substance: SUNITINIB MALATE
     Dosage: 50 MG, CYCLIC (4 WEEKS ON 2 WEEKS OFF)
  3. SUTENT [Suspect]
     Active Substance: SUNITINIB MALATE
     Dosage: 50 MG, CYCLIC (ONCE A DAY 4 WEEKS ON/2 WEEKS OFF)
     Route: 048
     Dates: start: 20140407
  4. LEVOTHYROXINE [Concomitant]
     Active Substance: LEVOTHYROXINE
     Dosage: 150 UG, 1X/DAY
  5. RANITIDINE HYDROCHLORIDE [Concomitant]
     Active Substance: RANITIDINE HYDROCHLORIDE
     Dosage: 150 MG, 2X/DAY
  6. HAFOOS [Concomitant]
     Dosage: UNK, 2X/DAY
  7. TELMISARTAN [Concomitant]
     Active Substance: TELMISARTAN
     Dosage: 40 MG

REACTIONS (10)
  - Death [Fatal]
  - Hypovolaemia [Unknown]
  - Liver disorder [Unknown]
  - Renal disorder [Unknown]
  - Neoplasm progression [Unknown]
  - Pyrexia [Unknown]
  - Blister [Unknown]
  - Palmar-plantar erythrodysaesthesia syndrome [Unknown]
  - Gastritis [Unknown]
  - Blood pressure diastolic increased [Unknown]
